FAERS Safety Report 18378231 (Version 2)
Quarter: 2020Q4

REPORT INFORMATION
  Report Type: Report from Study
  Country: EG (occurrence: EG)
  Receive Date: 20201013
  Receipt Date: 20201109
  Transmission Date: 20210114
  Serious: Yes (Other)
  Sender: FDA-Public Use
  Company Number: EG-BAYER-2020-016600

PATIENT
  Sex: Male

DRUGS (6)
  1. BETAFERON [Suspect]
     Active Substance: INTERFERON BETA-1B
     Indication: MULTIPLE SCLEROSIS
     Dosage: WHOLE VIAL, 3 DOSES/WEEK
     Route: 058
     Dates: start: 201904, end: 202004
  2. OMEGA-3 NOS [Concomitant]
     Active Substance: OMEGA-3 FATTY ACIDS
     Indication: NUTRITIONAL SUPPLEMENTATION
     Dosage: UNK
  3. LYRICA [Concomitant]
     Active Substance: PREGABALIN
     Dosage: UNK
  4. LACTOLAX [Concomitant]
     Dosage: EVERY 8 HOURS SINCE 2019
  5. EUCARBON [CHARCOAL, ACTIVATED;RHEUM SPP.;SENNA ALEXANDRINA LEAF] [Concomitant]
     Dosage: 3 TIMES PER DAY SINCE 2019
  6. VITAMIN D [VITAMIN D NOS] [Concomitant]
     Active Substance: VITAMIN D NOS
     Dosage: 1 DF, QD
     Dates: start: 2018

REACTIONS (12)
  - Hypotension [Not Recovered/Not Resolved]
  - Constipation [Not Recovered/Not Resolved]
  - Dyspnoea [Not Recovered/Not Resolved]
  - Balance disorder [Recovering/Resolving]
  - Product dose omission issue [Not Recovered/Not Resolved]
  - Incorrect dosage administered [Not Recovered/Not Resolved]
  - Memory impairment [Recovering/Resolving]
  - Product dose omission issue [Not Recovered/Not Resolved]
  - Fatigue [Recovering/Resolving]
  - Depression [Not Recovered/Not Resolved]
  - Cardiac discomfort [Not Recovered/Not Resolved]
  - Product prescribing issue [Not Recovered/Not Resolved]

NARRATIVE: CASE EVENT DATE: 2019
